FAERS Safety Report 25432505 (Version 5)
Quarter: 2025Q4

REPORT INFORMATION
  Report Type: Report from Study
  Country: US (occurrence: US)
  Receive Date: 20250613
  Receipt Date: 20251205
  Transmission Date: 20260118
  Serious: Yes (Hospitalization, Other)
  Sender: ABBVIE
  Company Number: US-ABBVIE-6322433

PATIENT
  Age: 82 Year
  Sex: Male
  Weight: 79.832 kg

DRUGS (4)
  1. VENCLEXTA [Suspect]
     Active Substance: VENETOCLAX
     Indication: Acute myeloid leukaemia
     Dosage: 4 VENCLEXTA OF 100 MG ONCE DAILY?STOP DATE: 2025 (48 DAYS OFF),
     Route: 048
     Dates: start: 20250412, end: 202505
  2. VENCLEXTA [Suspect]
     Active Substance: VENETOCLAX
     Indication: Acute myeloid leukaemia
     Dosage: FORM STRENGTH: 400 MILLIGRAM
     Route: 048
     Dates: start: 20250907, end: 20250928
  3. VENCLEXTA [Suspect]
     Active Substance: VENETOCLAX
     Indication: Acute myeloid leukaemia
     Route: 048
     Dates: start: 20251130
  4. VIDAZA [Concomitant]
     Active Substance: AZACITIDINE
     Indication: Leukaemia

REACTIONS (7)
  - Loss of consciousness [Unknown]
  - Malaise [Unknown]
  - White blood cell count decreased [Unknown]
  - Chills [Unknown]
  - Fatigue [Unknown]
  - Weight decreased [Recovering/Resolving]
  - Platelet count decreased [Unknown]

NARRATIVE: CASE EVENT DATE: 20250101
